FAERS Safety Report 21958106 (Version 1)
Quarter: 2023Q1

REPORT INFORMATION
  Report Type: Spontaneous
  Country: CN (occurrence: CN)
  Receive Date: 20230206
  Receipt Date: 20230206
  Transmission Date: 20230418
  Serious: Yes (Other)
  Sender: FDA-Public Use
  Company Number: CN-BAYER-2023A014355

PATIENT
  Age: 55 Year
  Sex: Male

DRUGS (2)
  1. STIVARGA [Suspect]
     Active Substance: REGORAFENIB
     Indication: Metastases to liver
     Dosage: 120 MG, QD
     Route: 048
     Dates: start: 201908, end: 202010
  2. STIVARGA [Suspect]
     Active Substance: REGORAFENIB
     Indication: Colon cancer

REACTIONS (2)
  - Metastases to liver [None]
  - Off label use [None]

NARRATIVE: CASE EVENT DATE: 20190801
